FAERS Safety Report 5034918-6 (Version None)
Quarter: 2006Q2

REPORT INFORMATION
  Report Type: 
  Country: None (occurrence: None)
  Receive Date: 20060517
  Receipt Date: 20051128
  Transmission Date: 20061013
  Serious: Yes (Other)
  Sender: FDA-Public Use
  Company Number: HQWYE797701DEC05

PATIENT
  Age: 20 Year
  Sex: Female
  Weight: 61.29 kg

DRUGS (2)
  1. ALESSE [Suspect]
     Indication: CONTRACEPTION
     Dosage: 1 TABLET 1X PER 1 DAY, ORAL
     Route: 048
     Dates: start: 20050901
  2. ZYRTEC-D 12 HOUR [Concomitant]

REACTIONS (2)
  - DIZZINESS [None]
  - SYNCOPE [None]
